FAERS Safety Report 9370391 (Version 1)
Quarter: 2013Q2

REPORT INFORMATION
  Report Type: Spontaneous
  Country: US (occurrence: US)
  Receive Date: 20130626
  Receipt Date: 20130626
  Transmission Date: 20140414
  Serious: No
  Sender: FDA-Public Use
  Company Number: US-009507513-1306USA008126

PATIENT
  Age: 53 Year
  Sex: Female
  Weight: 74.83 kg

DRUGS (7)
  1. VICTRELIS [Suspect]
     Indication: HEPATITIS C
     Dosage: 4 CAPSULES 200MG, TID, WITH MEALS
     Route: 048
  2. PEGASYS [Suspect]
     Indication: HEPATITIS C
     Dosage: UNK
     Route: 058
  3. REBETOL [Suspect]
     Indication: HEPATITIS C
     Route: 048
  4. VITAMINS (UNSPECIFIED) [Concomitant]
     Dosage: 1 CAPSULE, UNK
     Route: 048
  5. METFORMIN [Concomitant]
     Route: 048
  6. DILTIAZEM HYDROCHLORIDE [Concomitant]
     Dosage: 120 MG CD
     Route: 048
  7. BUPROPION HYDROCHLORIDE [Concomitant]
     Route: 048

REACTIONS (3)
  - Weight increased [Unknown]
  - Fatigue [Unknown]
  - Photosensitivity reaction [Unknown]
